FAERS Safety Report 5634272-2 (Version None)
Quarter: 2008Q1

REPORT INFORMATION
  Report Type: 
  Country: None (occurrence: None)
  Receive Date: 20080131
  Receipt Date: 20071018
  Transmission Date: 20080703
  Serious: Yes (Hospitalization)
  Sender: FDA-Public Use
  Company Number: 163013USA

PATIENT
  Age: 54 Year
  Sex: Female

DRUGS (3)
  1. COPAXONE [Suspect]
     Indication: MULTIPLE SCLEROSIS
     Dosage: (20 MG, SUBCUTANEOUS
     Route: 058
     Dates: end: 20051001
  2. ESCITALOPRAM OXALATE [Concomitant]
  3. BACLOFEN [Concomitant]

REACTIONS (4)
  - BLINDNESS [None]
  - DYSPHAGIA [None]
  - MULTIPLE SCLEROSIS RELAPSE [None]
  - PHARYNGEAL HYPOAESTHESIA [None]
